FAERS Safety Report 21049438 (Version 3)
Quarter: 2022Q3

REPORT INFORMATION
  Report Type: Spontaneous
  Country: RO (occurrence: RO)
  Receive Date: 20220706
  Receipt Date: 20220713
  Transmission Date: 20221027
  Serious: Yes (Hospitalization, Other)
  Sender: FDA-Public Use
  Company Number: RO-SUN PHARMACEUTICAL INDUSTRIES LTD-2022RR-341974

PATIENT
  Age: 80 Year
  Sex: Male

DRUGS (8)
  1. FLUCONAZOLE [Suspect]
     Active Substance: FLUCONAZOLE
     Indication: Candida infection
     Dosage: UNK
  2. CLINDAMYCIN HYDROCHLORIDE [Suspect]
     Active Substance: CLINDAMYCIN HYDROCHLORIDE
     Dosage: UNK
  3. TIGECYCLINE [Suspect]
     Active Substance: TIGECYCLINE
     Dosage: UNK
  4. MEROPENEM [Suspect]
     Active Substance: MEROPENEM
     Indication: Candida infection
     Dosage: UNK
  5. COLCHICINE [Suspect]
     Active Substance: COLCHICINE
     Dosage: UNK
  6. DEXAMETHASONE [Suspect]
     Active Substance: DEXAMETHASONE
     Indication: Polyarthritis
     Dosage: UNK
  7. RIFAMPIN [Suspect]
     Active Substance: RIFAMPIN
     Indication: Antibiotic therapy
     Dosage: UNK
  8. VANCOMYCIN HYDROCHLORIDE [Suspect]
     Active Substance: VANCOMYCIN HYDROCHLORIDE
     Indication: Candida infection
     Dosage: UNK

REACTIONS (4)
  - Drug ineffective [Unknown]
  - Candida infection [Unknown]
  - Staphylococcal infection [Unknown]
  - Vancomycin infusion reaction [Unknown]
